FAERS Safety Report 21530478 (Version 1)
Quarter: 2022Q4

REPORT INFORMATION
  Report Type: Spontaneous
  Country: US (occurrence: None)
  Receive Date: 20221028
  Receipt Date: 20221028
  Transmission Date: 20230113
  Serious: Yes (Other)
  Sender: FDA-Public Use
  Company Number: None

PATIENT
  Age: 72 Year
  Sex: Female
  Weight: 81 kg

DRUGS (10)
  1. MYRBETRIQ [Suspect]
     Active Substance: MIRABEGRON
     Indication: Urinary incontinence
     Dosage: OTHER QUANTITY : 1 TABLET(S);?FREQUENCY : DAILY;?
     Route: 048
  2. METOPROLOL [Concomitant]
     Active Substance: METOPROLOL
  3. SIMVASTATIN [Concomitant]
     Active Substance: SIMVASTATIN
  4. NEXIUM [Concomitant]
     Active Substance: ESOMEPRAZOLE MAGNESIUM
  5. HERBALS\SAW PALMETTO [Concomitant]
     Active Substance: HERBALS\SAW PALMETTO
  6. VITAMINS [Concomitant]
     Active Substance: VITAMINS
  7. MAGNESIUM [Concomitant]
     Active Substance: MAGNESIUM
  8. cranberry supplement [Concomitant]
  9. KRILL OIL [Concomitant]
     Active Substance: DIETARY SUPPLEMENT\KRILL OIL
  10. BIOTIN [Concomitant]
     Active Substance: BIOTIN

REACTIONS (15)
  - Eye pain [None]
  - Ocular hyperaemia [None]
  - Pruritus [None]
  - Pain in extremity [None]
  - Night sweats [None]
  - Dehydration [None]
  - Constipation [None]
  - Vision blurred [None]
  - Headache [None]
  - Depressed level of consciousness [None]
  - Dry skin [None]
  - Erythema [None]
  - Trichorrhexis [None]
  - Rectal haemorrhage [None]
  - Polycythaemia vera [None]

NARRATIVE: CASE EVENT DATE: 20220820
